FAERS Safety Report 6689897-2 (Version None)
Quarter: 2010Q2

REPORT INFORMATION
  Report Type: 
  Country: None (occurrence: None)
  Receive Date: 20100421
  Receipt Date: 20100316
  Transmission Date: 20101027
  Serious: No
  Sender: FDA-Public Use
  Company Number: US-TYCO HEALTHCARE/MALLINCKRODT-T201000825

PATIENT
  Age: 54 Year
  Sex: Female

DRUGS (3)
  1. METHYLIN [Suspect]
     Indication: ATTENTION DEFICIT/HYPERACTIVITY DISORDER
     Dosage: 40 MG, QD, PRN
  2. METHYLIN [Suspect]
     Dosage: 20 MG, QD, PRN
  3. WELLBUTRIN [Suspect]
     Dosage: UNK, QD

REACTIONS (2)
  - FATIGUE [None]
  - SLUGGISHNESS [None]
